FAERS Safety Report 5700516-1 (Version None)
Quarter: 2008Q2

REPORT INFORMATION
  Report Type: 
  Country: None (occurrence: None)
  Receive Date: 20080408
  Receipt Date: 20080408
  Transmission Date: 20081010
  Serious: Yes (Disabling)
  Sender: FDA-Public Use
  Company Number: None

PATIENT
  Age: 86 Year
  Sex: Male
  Weight: 74.9342 kg

DRUGS (1)
  1. DEXFERRUM [Suspect]
     Indication: ANAEMIA
     Dosage: 0.5 ML  ONCE  IV
     Route: 042
     Dates: start: 20080405, end: 20080405

REACTIONS (2)
  - BACK PAIN [None]
  - DYSPNOEA [None]
